FAERS Safety Report 7327740-9 (Version None)
Quarter: 2011Q1

REPORT INFORMATION
  Report Type: 
  Country: None (occurrence: None)
  Receive Date: 20110303
  Receipt Date: 20091221
  Transmission Date: 20110831
  Serious: No
  Sender: FDA-Public Use
  Company Number: US-BAYER-200943955NA

PATIENT
  Sex: Female
  Weight: 61.224 kg

DRUGS (5)
  1. DEPAKOTE [Concomitant]
  2. MIRENA [Suspect]
     Indication: CONTRACEPTION
     Dosage: 20 ?G/D, CONT
     Route: 015
     Dates: start: 20091101
  3. LITHIUM [Concomitant]
  4. GEODON [Concomitant]
     Indication: MOOD SWINGS
  5. LAMICTAL [Concomitant]

REACTIONS (1)
  - GENITAL HAEMORRHAGE [None]
